FAERS Safety Report 6894767-0 (Version None)
Quarter: 2010Q3

REPORT INFORMATION
  Report Type: 
  Country: None (occurrence: None)
  Receive Date: 20100728
  Receipt Date: 20100713
  Transmission Date: 20110219
  Serious: Yes (Death)
  Sender: FDA-Public Use
  Company Number: 009769

PATIENT
  Age: 85 Year
  Sex: Male

DRUGS (2)
  1. MACUGEN [Suspect]
     Indication: MACULAR DEGENERATION
     Dosage: 0 .3MG, CYCLIC, INTRAOCULAR
     Route: 031
     Dates: start: 20080710, end: 20081027
  2. MACUGEN [Suspect]
     Indication: MACULAR DEGENERATION
     Dosage: 0 .3MG, CYCLIC, INTRAOCULAR
     Route: 031
     Dates: start: 20090518

REACTIONS (6)
  - CEREBROVASCULAR ACCIDENT [None]
  - CONDITION AGGRAVATED [None]
  - MACULAR DEGENERATION [None]
  - QUALITY OF LIFE DECREASED [None]
  - RETINAL NEOVASCULARISATION [None]
  - VISUAL ACUITY REDUCED [None]
